FAERS Safety Report 5492853-3 (Version None)
Quarter: 2007Q4

REPORT INFORMATION
  Report Type: 
  Country: None (occurrence: None)
  Receive Date: 20071023
  Receipt Date: 20070206
  Transmission Date: 20080405
  Serious: Yes (Hospitalization)
  Sender: FDA-Public Use
  Company Number: US-BRISTOL-MYERS SQUIBB COMPANY-13671292

PATIENT
  Age: 37 Year
  Sex: Female

DRUGS (5)
  1. BUSPAR [Suspect]
     Indication: ANXIETY
     Route: 048
     Dates: start: 20050501
  2. WELLBUTRIN [Suspect]
     Indication: DEPRESSION
     Route: 048
     Dates: start: 20050501
  3. AMBIEN [Suspect]
     Indication: INSOMNIA
     Route: 048
     Dates: start: 20050801
  4. XANAX [Suspect]
     Indication: ANXIETY
     Route: 048
     Dates: start: 20050501
  5. REBIF [Concomitant]
     Route: 058

REACTIONS (1)
  - CONVULSION [None]
